FAERS Safety Report 8575075-9 (Version None)
Quarter: 2012Q3

REPORT INFORMATION
  Report Type: 
  Country: None (occurrence: None)
  Receive Date: 20120807
  Receipt Date: 20120726
  Transmission Date: 20120928
  Serious: Yes (Hospitalization)
  Sender: FDA-Public Use
  Company Number: US-BAYER-2011-001413

PATIENT
  Age: 52 Year
  Sex: Female
  Weight: 69.388 kg

DRUGS (2)
  1. YAZ [Suspect]
     Indication: PREMENSTRUAL SYNDROME
     Dosage: UNK
     Route: 048
     Dates: start: 20080801, end: 20081201
  2. CALCIUM [Concomitant]

REACTIONS (11)
  - DEEP VEIN THROMBOSIS [None]
  - LIMB INJURY [None]
  - EMOTIONAL DISTRESS [None]
  - OEDEMA PERIPHERAL [None]
  - PAIN IN EXTREMITY [None]
  - DECREASED ACTIVITY [None]
  - SPIDER VEIN [None]
  - LIMB ASYMMETRY [None]
  - ANXIETY [None]
  - PAIN [None]
  - WEIGHT INCREASED [None]
